FAERS Safety Report 4786492-7 (Version None)
Quarter: 2005Q3

REPORT INFORMATION
  Report Type: 
  Country: None (occurrence: None)
  Receive Date: 20050914
  Receipt Date: 20050209
  Transmission Date: 20060218
  Serious: Yes (Life-Threatening, Hospitalization)
  Sender: FDA-Public Use
  Company Number: 163-20785-05020164

PATIENT
  Age: 80 Year
  Sex: Male

DRUGS (14)
  1. THALOMID [Suspect]
     Indication: MULTIPLE MYELOMA
     Dosage: 200 MG, DAILY, ORAL
     Route: 048
     Dates: start: 20041111, end: 20041201
  2. BACTRIM [Concomitant]
  3. DECADRON [Concomitant]
  4. ZANTAC [Concomitant]
  5. THERAGRAN (THERAGRAN) (TABLETS) [Concomitant]
  6. TOPROL-XL [Concomitant]
  7. DIOVAN HCT (CO-DIOVAN) [Concomitant]
  8. PLAVIX [Concomitant]
  9. NIASPAN ER (NICOTINIC ACID) [Concomitant]
  10. ASPIRIN [Concomitant]
  11. PAXIL CR [Concomitant]
  12. NEXIUM [Concomitant]
  13. CADUET [Concomitant]
  14. IRON (IRON) [Concomitant]

REACTIONS (5)
  - CEREBROVASCULAR ACCIDENT [None]
  - DIZZINESS [None]
  - FALL [None]
  - FATIGUE [None]
  - HEMIPARESIS [None]
